FAERS Safety Report 12512461 (Version 2)
Quarter: 2016Q3

REPORT INFORMATION
  Report Type: Spontaneous
  Country: US (occurrence: US)
  Receive Date: 20160630
  Receipt Date: 20160921
  Transmission Date: 20161109
  Serious: Yes (Hospitalization)
  Sender: FDA-Public Use
  Company Number: US-JNJFOC-20160529490

PATIENT
  Age: 51 Year
  Sex: Male

DRUGS (5)
  1. XARELTO [Suspect]
     Active Substance: RIVAROXABAN
     Indication: THROMBOCYTOPENIA
     Route: 048
     Dates: end: 20140708
  2. XARELTO [Suspect]
     Active Substance: RIVAROXABAN
     Indication: DEEP VEIN THROMBOSIS
     Route: 048
     Dates: end: 20140708
  3. XARELTO [Suspect]
     Active Substance: RIVAROXABAN
     Indication: THROMBOCYTOPENIA
     Route: 048
     Dates: start: 20140529, end: 20140625
  4. HEPARIN [Suspect]
     Active Substance: HEPARIN SODIUM
     Indication: DIALYSIS
     Route: 065
  5. XARELTO [Suspect]
     Active Substance: RIVAROXABAN
     Indication: DEEP VEIN THROMBOSIS
     Route: 048
     Dates: start: 20140529, end: 20140625

REACTIONS (2)
  - Lower gastrointestinal haemorrhage [Recovering/Resolving]
  - Thrombocytopenia [Unknown]

NARRATIVE: CASE EVENT DATE: 2014
